FAERS Safety Report 25282491 (Version 1)
Quarter: 2025Q2

REPORT INFORMATION
  Report Type: Spontaneous
  Country: ES (occurrence: ES)
  Receive Date: 20250508
  Receipt Date: 20250508
  Transmission Date: 20250716
  Serious: Yes (Disabling)
  Sender: SANDOZ
  Company Number: ES-AEMPS-1666620

PATIENT
  Age: 66 Year
  Sex: Female

DRUGS (2)
  1. AZOPT [Suspect]
     Active Substance: BRINZOLAMIDE
     Indication: Glaucoma
     Dosage: 1 DRP, Q12H (EYE DROPS)
     Route: 047
     Dates: start: 20210628, end: 20220705
  2. BIMATOPROST\TIMOLOL [Suspect]
     Active Substance: BIMATOPROST\TIMOLOL
     Indication: Glaucoma
     Dosage: 1 DRP, Q6H (CHRONICAL 1 BREAKFAST, 1 LUNCH, 1 DINNER, 1 BEDTIME, 0.3 MG/ML + 5 MG/ML EYE DROPS IN SO
     Route: 065
     Dates: start: 20210628

REACTIONS (1)
  - Retinal artery occlusion [Not Recovered/Not Resolved]

NARRATIVE: CASE EVENT DATE: 20220209
